FAERS Safety Report 6362183-6 (Version None)
Quarter: 2009Q3

REPORT INFORMATION
  Report Type: 
  Country: None (occurrence: None)
  Receive Date: 20090918
  Receipt Date: 20090911
  Transmission Date: 20100115
  Serious: Yes (Hospitalization, Other)
  Sender: FDA-Public Use
  Company Number: US-B.I. PHARMACEUTICALS,INC./RIDGEFIELD-2009-BP-09977BP

PATIENT
  Sex: Male

DRUGS (42)
  1. FLOMAX [Suspect]
     Indication: BENIGN PROSTATIC HYPERPLASIA
     Dosage: 0.4 MG
     Route: 048
     Dates: start: 20071030
  2. FLOMAX [Suspect]
     Indication: HYPERTONIC BLADDER
     Dosage: 0.8 MG
     Route: 048
     Dates: start: 20031106, end: 20031202
  3. FLOMAX [Suspect]
     Dosage: 0.4 MG
     Route: 048
     Dates: start: 20030910, end: 20031106
  4. DETROL LA [Concomitant]
     Indication: HYPERTONIC BLADDER
     Dosage: 4 MG
     Dates: start: 20080318
  5. NITROGLYCERIN [Concomitant]
     Indication: CARDIAC DISORDER
     Dates: start: 20040304
  6. NITROGLYCERIN [Concomitant]
     Indication: CHEST PAIN
  7. METOPROLOL TARTRATE [Concomitant]
     Indication: BLOOD PRESSURE
     Dosage: 100 MG
     Dates: start: 20070821
  8. METOPROLOL TARTRATE [Concomitant]
     Indication: CARDIAC DISORDER
  9. METOPROLOL TARTRATE [Concomitant]
     Indication: LABILE BLOOD PRESSURE
  10. SIMVASTATIN [Concomitant]
     Indication: BLOOD CHOLESTEROL INCREASED
     Dosage: 20 MG
     Dates: start: 20040304
  11. OMEPRAZOLE [Concomitant]
     Indication: POST GASTRIC SURGERY SYNDROME
     Dates: start: 20090610
  12. OMEPRAZOLE [Concomitant]
     Indication: GASTROINTESTINAL DISORDER
  13. TRAMADOL HCL [Concomitant]
     Indication: HEADACHE
     Dosage: 300 MG
     Dates: start: 20080611
  14. TRAMADOL HCL [Concomitant]
     Indication: PAIN
  15. MELATONIN [Concomitant]
     Indication: SLEEP DISORDER
     Dosage: 3 MG
     Dates: start: 20081021
  16. METAMUCIL [Concomitant]
     Indication: POST GASTRIC SURGERY SYNDROME
     Dates: start: 20030910
  17. METAMUCIL [Concomitant]
     Indication: GASTRIC DISORDER
  18. RANITIDINE HCL [Concomitant]
     Indication: GASTROOESOPHAGEAL REFLUX DISEASE
     Dosage: 300 MG
     Dates: start: 20071023
  19. RANITIDINE HCL [Concomitant]
     Indication: DYSPEPSIA
  20. NASONEX [Concomitant]
     Indication: MULTIPLE ALLERGIES
     Dates: start: 20070610
  21. LORATADINE [Concomitant]
     Indication: HYPERSENSITIVITY
     Dosage: 10 MG
     Dates: start: 20070618
  22. ASPIRIN [Concomitant]
     Indication: CARDIAC DISORDER
     Dosage: 81 MG
     Dates: start: 20080310
  23. FAMCICLOVIR [Concomitant]
     Indication: GENITAL HERPES
     Dosage: 500 MG
     Dates: start: 20050304
  24. FAMCICLOVIR [Concomitant]
     Indication: HERPES ZOSTER
  25. METRONIDAZOLE [Concomitant]
     Indication: GASTROINTESTINAL BACTERIAL INFECTION
     Dosage: 1500 MG
     Dates: start: 20070720
  26. LISINOPRIL [Concomitant]
     Indication: BLOOD PRESSURE
     Dosage: 5 MG
     Dates: start: 20071005, end: 20090714
  27. AMLODIPINE SULFATE [Concomitant]
     Indication: BLOOD PRESSURE
     Dosage: 10 MG
     Dates: start: 20071030
  28. ZOLPIDEM [Concomitant]
     Indication: SLEEP DISORDER
     Dosage: 10 MG
     Dates: start: 20081021, end: 20090705
  29. PIROXICAM [Concomitant]
     Indication: ARTHRITIS
     Dosage: 20 MG
     Dates: start: 20090209
  30. PLAVIX [Concomitant]
     Indication: CARDIAC DISORDER
     Dosage: 75 MG
     Dates: start: 20090602
  31. PLAVIX [Concomitant]
     Indication: ANTICOAGULANT THERAPY
  32. ISOSORBIDE MONONITRATE [Concomitant]
     Indication: CARDIAC DISORDER
     Dosage: 15 MG
     Dates: start: 20090602, end: 20090714
  33. ISOSORBIDE MONONITRATE [Concomitant]
     Indication: BLOOD PRESSURE
  34. MIRALAX [Concomitant]
     Indication: CONSTIPATION
     Dosage: 34 G
     Dates: start: 20090610, end: 20090705
  35. ALPRAZOLAM [Concomitant]
     Indication: SLEEP DISORDER
     Dosage: 12.5 G
     Dates: start: 20090706
  36. ALPRAZOLAM [Concomitant]
     Indication: DEPRESSION
  37. FISH OIL [Concomitant]
     Dosage: 1000 MG
     Dates: start: 20081007
  38. COMPLETE MULTI-VITAMIN WITH LUTEIN [Concomitant]
     Dates: start: 20030910
  39. IMODIUM-AD + ADV [Concomitant]
     Indication: DIARRHOEA
     Dates: start: 20030910
  40. STOOL SOFTENER [Concomitant]
     Dosage: 100 MG
  41. UROXATRAL [Concomitant]
     Dosage: 10 MG
     Dates: start: 20031203, end: 20041207
  42. TERAZOSIN HCL [Concomitant]
     Dates: start: 20050928

REACTIONS (8)
  - CARDIAC STRESS TEST ABNORMAL [None]
  - CHEST PAIN [None]
  - DEPRESSION [None]
  - EJACULATION FAILURE [None]
  - ERECTILE DYSFUNCTION [None]
  - HYPERTENSION [None]
  - MYOCARDIAL INFARCTION [None]
  - URINARY RETENTION [None]
